FAERS Safety Report 25925959 (Version 1)
Quarter: 2025Q4

REPORT INFORMATION
  Report Type: Spontaneous
  Country: EU (occurrence: EU)
  Receive Date: 20251015
  Receipt Date: 20251015
  Transmission Date: 20260117
  Serious: Yes (Other)
  Sender: MYLAN
  Company Number: None

PATIENT
  Sex: Female

DRUGS (24)
  1. XANAX [Suspect]
     Active Substance: ALPRAZOLAM
     Indication: Product used for unknown indication
     Dosage: LARGER QUANTITY
     Dates: start: 20250807, end: 20250807
  2. XANAX [Suspect]
     Active Substance: ALPRAZOLAM
     Dosage: LARGER QUANTITY
     Route: 048
     Dates: start: 20250807, end: 20250807
  3. XANAX [Suspect]
     Active Substance: ALPRAZOLAM
     Dosage: LARGER QUANTITY
     Route: 048
     Dates: start: 20250807, end: 20250807
  4. XANAX [Suspect]
     Active Substance: ALPRAZOLAM
     Dosage: LARGER QUANTITY
     Dates: start: 20250807, end: 20250807
  5. FEVARIN [Suspect]
     Active Substance: FLUVOXAMINE MALEATE
     Indication: Product used for unknown indication
     Dosage: 1000 MILLIGRAM, QD
     Dates: start: 20250807, end: 20250807
  6. FEVARIN [Suspect]
     Active Substance: FLUVOXAMINE MALEATE
     Dosage: 1000 MILLIGRAM, QD
     Route: 048
     Dates: start: 20250807, end: 20250807
  7. FEVARIN [Suspect]
     Active Substance: FLUVOXAMINE MALEATE
     Dosage: 1000 MILLIGRAM, QD
     Route: 048
     Dates: start: 20250807, end: 20250807
  8. FEVARIN [Suspect]
     Active Substance: FLUVOXAMINE MALEATE
     Dosage: 1000 MILLIGRAM, QD
     Dates: start: 20250807, end: 20250807
  9. ZOLOFT [Suspect]
     Active Substance: SERTRALINE HYDROCHLORIDE
     Indication: Product used for unknown indication
     Dosage: 1400 MILLIGRAM, QD
     Dates: start: 20250807, end: 20250807
  10. ZOLOFT [Suspect]
     Active Substance: SERTRALINE HYDROCHLORIDE
     Dosage: 1400 MILLIGRAM, QD
     Route: 048
     Dates: start: 20250807, end: 20250807
  11. ZOLOFT [Suspect]
     Active Substance: SERTRALINE HYDROCHLORIDE
     Dosage: 1400 MILLIGRAM, QD
     Route: 048
     Dates: start: 20250807, end: 20250807
  12. ZOLOFT [Suspect]
     Active Substance: SERTRALINE HYDROCHLORIDE
     Dosage: 1400 MILLIGRAM, QD
     Dates: start: 20250807, end: 20250807
  13. QUETIAPINE [Suspect]
     Active Substance: QUETIAPINE
     Indication: Product used for unknown indication
     Dosage: 975 MILLIGRAM, QD
     Dates: start: 20250807, end: 20250807
  14. QUETIAPINE [Suspect]
     Active Substance: QUETIAPINE
     Dosage: 975 MILLIGRAM, QD
     Route: 048
     Dates: start: 20250807, end: 20250807
  15. QUETIAPINE [Suspect]
     Active Substance: QUETIAPINE
     Dosage: 975 MILLIGRAM, QD
     Route: 048
     Dates: start: 20250807, end: 20250807
  16. QUETIAPINE [Suspect]
     Active Substance: QUETIAPINE
     Dosage: 975 MILLIGRAM, QD
     Dates: start: 20250807, end: 20250807
  17. DIAZEPAM [Suspect]
     Active Substance: DIAZEPAM
     Indication: Product used for unknown indication
     Dosage: 40 MILLIGRAM, QD
     Dates: start: 20250807, end: 20250807
  18. DIAZEPAM [Suspect]
     Active Substance: DIAZEPAM
     Dosage: 40 MILLIGRAM, QD
     Route: 048
     Dates: start: 20250807, end: 20250807
  19. DIAZEPAM [Suspect]
     Active Substance: DIAZEPAM
     Dosage: 40 MILLIGRAM, QD
     Route: 048
     Dates: start: 20250807, end: 20250807
  20. DIAZEPAM [Suspect]
     Active Substance: DIAZEPAM
     Dosage: 40 MILLIGRAM, QD
     Dates: start: 20250807, end: 20250807
  21. PAROXETINE HYDROCHLORIDE [Suspect]
     Active Substance: PAROXETINE HYDROCHLORIDE
     Indication: Product used for unknown indication
     Dosage: 80 MILLIGRAM, QD
     Dates: start: 20250807, end: 20250807
  22. PAROXETINE HYDROCHLORIDE [Suspect]
     Active Substance: PAROXETINE HYDROCHLORIDE
     Dosage: 80 MILLIGRAM, QD
     Route: 048
     Dates: start: 20250807, end: 20250807
  23. PAROXETINE HYDROCHLORIDE [Suspect]
     Active Substance: PAROXETINE HYDROCHLORIDE
     Dosage: 80 MILLIGRAM, QD
     Route: 048
     Dates: start: 20250807, end: 20250807
  24. PAROXETINE HYDROCHLORIDE [Suspect]
     Active Substance: PAROXETINE HYDROCHLORIDE
     Dosage: 80 MILLIGRAM, QD
     Dates: start: 20250807, end: 20250807

REACTIONS (5)
  - Suicide attempt [Unknown]
  - Loss of consciousness [Unknown]
  - Somnolence [Unknown]
  - Paraesthesia [Unknown]
  - Intentional overdose [Unknown]

NARRATIVE: CASE EVENT DATE: 20250807
